FAERS Safety Report 12361255 (Version 1)
Quarter: 2016Q2

REPORT INFORMATION
  Report Type: Spontaneous
  Country: US (occurrence: US)
  Receive Date: 20160512
  Receipt Date: 20160512
  Transmission Date: 20160815
  Serious: No
  Sender: FDA-Public Use
  Company Number: US-BAUSCH-BL-2015-021994

PATIENT
  Age: 64 Year
  Sex: Female
  Weight: 50.85 kg

DRUGS (3)
  1. OTC ZYRTEC [Concomitant]
     Indication: MULTIPLE ALLERGIES
     Dosage: 1 TABLET ONCE TO TWICE PER WEEK
     Route: 048
     Dates: start: 2012
  2. TIMOLOL. [Concomitant]
     Active Substance: TIMOLOL
     Indication: GLAUCOMA
     Route: 047
     Dates: start: 20150917
  3. LATANOPROST OPHTHALMIC SOLUTION 0.005% [Suspect]
     Active Substance: LATANOPROST
     Indication: NORMAL TENSION GLAUCOMA
     Route: 047
     Dates: start: 201508

REACTIONS (2)
  - Incorrect product storage [Unknown]
  - Drug effect incomplete [Unknown]
